FAERS Safety Report 10520836 (Version 1)
Quarter: 2014Q4

REPORT INFORMATION
  Report Type: Report from Study
  Country: MX (occurrence: MX)
  Receive Date: 20141015
  Receipt Date: 20141015
  Transmission Date: 20150528
  Serious: Yes (Other)
  Sender: FDA-Public Use
  Company Number: PHHY2014MX133626

PATIENT
  Sex: Male

DRUGS (2)
  1. ONBREZ [Suspect]
     Active Substance: INDACATEROL
     Indication: CHRONIC OBSTRUCTIVE PULMONARY DISEASE
     Dosage: 15 UG, (1) DAILY
     Route: 055
     Dates: start: 201210
  2. CAUDALINE [Concomitant]
     Indication: CARDIAC DISORDER
     Dosage: 1 DF, (DAILY)
     Route: 065

REACTIONS (1)
  - Arterial occlusive disease [Not Recovered/Not Resolved]
